FAERS Safety Report 6206257-9 (Version None)
Quarter: 2009Q2

REPORT INFORMATION
  Report Type: 
  Country: None (occurrence: None)
  Receive Date: 20090526
  Receipt Date: 20090513
  Transmission Date: 20091009
  Serious: Yes (Other)
  Sender: FDA-Public Use
  Company Number: 235411K09USA

PATIENT
  Age: 24 Year
  Sex: Female

DRUGS (4)
  1. REBIF [Suspect]
     Indication: MULTIPLE SCLEROSIS
     Dosage: 44 MCG, 3 IN 1 WEEKS, SUBCUTANEOUS
     Route: 058
     Dates: start: 20080916
  2. CARBATROL [Concomitant]
  3. KEPPRA [Concomitant]
  4. RESCON (CONTAC) [Concomitant]

REACTIONS (1)
  - GRAND MAL CONVULSION [None]
